FAERS Safety Report 5413604-4 (Version None)
Quarter: 2007Q3

REPORT INFORMATION
  Report Type: 
  Country: None (occurrence: None)
  Receive Date: 20070814
  Receipt Date: 20060727
  Transmission Date: 20080115
  Serious: No
  Sender: FDA-Public Use
  Company Number: US-BRISTOL-MYERS SQUIBB COMPANY-13458088

PATIENT
  Sex: Male

DRUGS (7)
  1. GLUCOVANCE [Suspect]
     Indication: DIABETES MELLITUS MANAGEMENT
     Dosage: 2.5MG/500MG
     Route: 048
     Dates: start: 20060710
  2. OMEPRAZOLE [Concomitant]
     Dates: start: 20060401
  3. AMBIEN [Concomitant]
     Dates: start: 20060629
  4. CYMBALTA [Concomitant]
     Dates: start: 20051212
  5. LUNESTA [Concomitant]
     Dates: start: 20060624
  6. DIOVAN [Concomitant]
     Dates: start: 20060523
  7. VYTORIN [Concomitant]
     Dates: start: 20060523

REACTIONS (1)
  - BLOOD GLUCOSE INCREASED [None]
